FAERS Safety Report 22205139 (Version 3)
Quarter: 2023Q2

REPORT INFORMATION
  Report Type: Report from Study
  Country: CA (occurrence: CA)
  Receive Date: 20230413
  Receipt Date: 20230608
  Transmission Date: 20230722
  Serious: Yes (Other)
  Sender: FDA-Public Use
  Company Number: CA-JNJFOC-20221233635

PATIENT
  Age: 64 Year
  Sex: Female

DRUGS (2)
  1. REMICADE [Suspect]
     Active Substance: INFLIXIMAB
     Indication: Crohn^s disease
     Dosage: ON 06-FEB-2023, RECEIVED 13TH INFLIXIMAB, RECOMBINANT INFUSION OF 600 MG AND PARTIAL HARVEY BRADSHAW
     Route: 042
     Dates: start: 20210510
  2. SENNOSIDES [Suspect]
     Active Substance: SENNOSIDES
     Indication: Product used for unknown indication
     Route: 065

REACTIONS (23)
  - Hip arthroplasty [Unknown]
  - Spinal fracture [Unknown]
  - Fractured coccyx [Unknown]
  - COVID-19 [Unknown]
  - General physical health deterioration [Unknown]
  - Sciatica [Unknown]
  - Blood glucose abnormal [Unknown]
  - Abdominal distension [Unknown]
  - Eating disorder [Unknown]
  - Weight increased [Recovering/Resolving]
  - Anxiety [Unknown]
  - Cyst [Unknown]
  - Faeces hard [Unknown]
  - Diarrhoea [Unknown]
  - Dizziness [Unknown]
  - Back pain [Unknown]
  - Abdominal pain [Unknown]
  - Headache [Unknown]
  - Fatigue [Unknown]
  - Drug ineffective [Unknown]
  - Constipation [Unknown]
  - Frequent bowel movements [Unknown]
  - Dyspepsia [Unknown]

NARRATIVE: CASE EVENT DATE: 20230116
